FAERS Safety Report 8917205 (Version 1)
Quarter: 2012Q4

REPORT INFORMATION
  Report Type: 
  Country: BE (occurrence: BE)
  Receive Date: 20121120
  Receipt Date: 20121120
  Transmission Date: 20130627
  Serious: Yes (Death)
  Sender: FDA-Public Use
  Company Number: PHHY2012BE105108

PATIENT
  Sex: Male

DRUGS (1)
  1. ACLASTA [Suspect]
     Indication: OSTEOPOROSIS
     Dosage: 5 mg, Yearly
     Route: 042
     Dates: start: 20111123

REACTIONS (2)
  - Lung neoplasm malignant [Fatal]
  - Malignant neoplasm progression [Fatal]
